FAERS Safety Report 10081141 (Version 2)
Quarter: 2014Q2

REPORT INFORMATION
  Report Type: Spontaneous
  Country: BR (occurrence: BR)
  Receive Date: 20140416
  Receipt Date: 20140425
  Transmission Date: 20141212
  Serious: Yes (Hospitalization)
  Sender: FDA-Public Use
  Company Number: BR-MALLINCKRODT-T201401816

PATIENT
  Age: 54 Year
  Sex: Female

DRUGS (4)
  1. OPTIRAY [Suspect]
     Indication: ANGIOGRAM
     Dosage: 100 ML, UNK
     Route: 042
     Dates: start: 20140403, end: 20140403
  2. LEVOFLOXACIN [Concomitant]
     Indication: PNEUMONIA
     Dosage: UNK
     Dates: end: 20140331
  3. PREDNISONE [Concomitant]
     Indication: PNEUMONIA
  4. SERETIDE [Concomitant]
     Indication: PNEUMONIA

REACTIONS (4)
  - Blood pressure immeasurable [Recovered/Resolved]
  - Bronchospasm [Recovered/Resolved]
  - Loss of consciousness [Recovered/Resolved]
  - Flushing [Recovered/Resolved]
